FAERS Safety Report 11722400 (Version 1)
Quarter: 2015Q4

REPORT INFORMATION
  Report Type: Spontaneous
  Country: DE (occurrence: DE)
  Receive Date: 20151111
  Receipt Date: 20151111
  Transmission Date: 20160304
  Serious: Yes (Life-Threatening, Hospitalization, Other)
  Sender: FDA-Public Use
  Company Number: DE-ACTAVIS-2015-23929

PATIENT
  Age: 43 Year
  Sex: Female
  Weight: 58 kg

DRUGS (3)
  1. ETHANOL [Suspect]
     Active Substance: ALCOHOL
     Indication: SUICIDE ATTEMPT
     Dosage: UNK
     Route: 048
  2. CARBAMAZEPINE (UNKNOWN) [Suspect]
     Active Substance: CARBAMAZEPINE
     Indication: SUICIDE ATTEMPT
     Dosage: 21 G, TOTAL
     Route: 048
  3. CARBAMAZEPINE (UNKNOWN) [Suspect]
     Active Substance: CARBAMAZEPINE
     Indication: EPILEPSY
     Dosage: 300 MG, DAILY

REACTIONS (3)
  - Coma [Recovered/Resolved]
  - Vomiting [Recovered/Resolved]
  - Intentional overdose [Recovered/Resolved]
